FAERS Safety Report 8219462-7 (Version None)
Quarter: 2012Q1

REPORT INFORMATION
  Report Type: 
  Country: None (occurrence: None)
  Receive Date: 20120319
  Receipt Date: 20120313
  Transmission Date: 20120608
  Serious: No
  Sender: FDA-Public Use
  Company Number: US-PFIZER INC-2012066568

PATIENT
  Sex: Male
  Weight: 86.168 kg

DRUGS (2)
  1. VIAGRA [Suspect]
     Indication: ERECTILE DYSFUNCTION
     Dosage: 100 MG, AS NEEDED
     Route: 048
     Dates: end: 20090101
  2. TESTOSTERONE [Suspect]
     Indication: BLOOD TESTOSTERONE DECREASED
     Dosage: 0.5 ML, 2X/WEEK
     Route: 030
     Dates: start: 20090101

REACTIONS (2)
  - BLOOD TESTOSTERONE DECREASED [None]
  - BLOOD OESTROGEN INCREASED [None]
